FAERS Safety Report 15389518 (Version 1)
Quarter: 2018Q3

REPORT INFORMATION
  Report Type: Spontaneous
  Country: US (occurrence: US)
  Receive Date: 20180917
  Receipt Date: 20180917
  Transmission Date: 20181010
  Serious: No
  Sender: FDA-Public Use
  Company Number: US-TEVA-801600ACC

PATIENT
  Sex: Male

DRUGS (2)
  1. FENTANYL. [Suspect]
     Active Substance: FENTANYL
     Dosage: DOSE: 12 MCG/HR
     Route: 065
  2. FENTANYL. [Suspect]
     Active Substance: FENTANYL
     Indication: PRODUCT USED FOR UNKNOWN INDICATION
     Dosage: DOSE: 25 MCG/HR
     Route: 065

REACTIONS (5)
  - Overdose [Unknown]
  - Product adhesion issue [Unknown]
  - Rash macular [Unknown]
  - Drug effect incomplete [Unknown]
  - Product physical issue [Unknown]
